FAERS Safety Report 23377477 (Version 1)
Quarter: 2024Q1

REPORT INFORMATION
  Report Type: Spontaneous
  Country: US (occurrence: None)
  Receive Date: 20240105
  Receipt Date: 20240105
  Transmission Date: 20240410
  Serious: Yes (Other)
  Sender: FDA-Public Use
  Company Number: None

PATIENT
  Age: 83 Year
  Sex: Female

DRUGS (12)
  1. AMBRISENTAN [Suspect]
     Active Substance: AMBRISENTAN
     Indication: Pulmonary hypertension
     Dosage: FREQUENCY : DAILY;?
     Route: 048
     Dates: start: 20230509
  2. SILDENAFIL [Concomitant]
  3. ESTRADIOL [Concomitant]
     Active Substance: ESTRADIOL
  4. ATORVASTATIN [Concomitant]
  5. LINAGLIPTIN [Concomitant]
  6. AZELASTINE NASAL SPRAY [Concomitant]
  7. FLONASE [Concomitant]
  8. FUROSEMIDE [Concomitant]
  9. LISINOPIRL [Concomitant]
  10. MVI [Concomitant]
  11. VITAMIN B COMPLEX [Concomitant]
     Active Substance: CYANOCOBALAMIN\DEXPANTHENOL\NIACINAMIDE\PYRIDOXINE HYDROCHLORIDE\RIBOFLAVIN 5^-PHOSPHATE SODIUM\THIA
  12. VIT D3 [Concomitant]

REACTIONS (4)
  - Dizziness [None]
  - Malaise [None]
  - Fatigue [None]
  - Vulvovaginal pruritus [None]

NARRATIVE: CASE EVENT DATE: 20231222
